FAERS Safety Report 10626381 (Version 1)
Quarter: 2014Q4

REPORT INFORMATION
  Report Type: Spontaneous
  Country: ES (occurrence: ES)
  Receive Date: 20141204
  Receipt Date: 20141204
  Transmission Date: 20150529
  Serious: Yes (Hospitalization)
  Sender: FDA-Public Use
  Company Number: ES-ASTRAZENECA-2014SE91290

PATIENT
  Age: 662 Month
  Sex: Male
  Weight: 86 kg

DRUGS (5)
  1. LORAZEPAM. [Concomitant]
     Active Substance: LORAZEPAM
  2. PROVISACOR [Suspect]
     Active Substance: ROSUVASTATIN
     Indication: HYPERCHOLESTEROLAEMIA
     Route: 048
     Dates: start: 20140914
  3. ZARELIS RETARD [Concomitant]
  4. LYRICA [Concomitant]
     Active Substance: PREGABALIN
  5. PANTOPRAZOLE [Concomitant]
     Active Substance: PANTOPRAZOLE SODIUM

REACTIONS (20)
  - Arthralgia [Unknown]
  - Musculoskeletal pain [Recovering/Resolving]
  - Hyperhidrosis [Recovering/Resolving]
  - Tendon pain [Recovering/Resolving]
  - Liver disorder [Unknown]
  - Visual impairment [Recovering/Resolving]
  - Headache [Recovering/Resolving]
  - Joint range of motion decreased [Unknown]
  - Ear discomfort [Unknown]
  - Ear pain [Recovering/Resolving]
  - Disorientation [Recovering/Resolving]
  - Myalgia [Recovering/Resolving]
  - Muscle rupture [Recovering/Resolving]
  - Abdominal pain upper [Recovering/Resolving]
  - Fatigue [Recovering/Resolving]
  - Disturbance in attention [Recovering/Resolving]
  - Depressed mood [Recovering/Resolving]
  - Hypoaesthesia [Recovering/Resolving]
  - Memory impairment [Unknown]
  - Muscle spasms [Recovering/Resolving]

NARRATIVE: CASE EVENT DATE: 201409
